FAERS Safety Report 22091496 (Version 1)
Quarter: 2023Q1

REPORT INFORMATION
  Report Type: Spontaneous
  Country: US (occurrence: US)
  Receive Date: 20230314
  Receipt Date: 20230314
  Transmission Date: 20230418
  Serious: Yes (Hospitalization, Other)
  Sender: FDA-Public Use
  Company Number: US-ALEMBIC PHARMACUETICALS LIMITED-2023SCAL000083

PATIENT

DRUGS (3)
  1. METRONIDAZOLE [Suspect]
     Active Substance: METRONIDAZOLE
     Indication: Liver abscess
     Dosage: 500 MG, TID
     Route: 065
  2. CIPROFLOXACIN [Concomitant]
     Active Substance: CIPROFLOXACIN
     Indication: Liver abscess
     Dosage: 500 MG, BID
     Route: 065
  3. CEFEPIME [Concomitant]
     Active Substance: CEFEPIME HYDROCHLORIDE
     Indication: Liver abscess
     Dosage: UNK
     Route: 065

REACTIONS (8)
  - Toxicity to various agents [Recovered/Resolved]
  - Neurotoxicity [Recovered/Resolved]
  - Syncope [Recovered/Resolved]
  - Seizure [Recovered/Resolved]
  - Fall [Recovered/Resolved]
  - Tremor [Recovered/Resolved]
  - Romberg test positive [Recovered/Resolved]
  - Ataxia [Recovered/Resolved]
